FAERS Safety Report 9018283 (Version 1)
Quarter: 2013Q1

REPORT INFORMATION
  Report Type: Spontaneous
  Country: DE (occurrence: ES)
  Receive Date: 20130117
  Receipt Date: 20130117
  Transmission Date: 20140127
  Serious: Yes (Life-Threatening, Hospitalization)
  Sender: FDA-Public Use
  Company Number: DE-ACTELION-A-US2012-77037

PATIENT
  Age: 67 Year
  Sex: Female
  Weight: 74.83 kg

DRUGS (6)
  1. VENTAVIS BAYER SCHERING [Suspect]
     Indication: PULMONARY ARTERIAL HYPERTENSION
     Dosage: 2.5 UNK, UNK
     Route: 055
     Dates: start: 20121218, end: 20121219
  2. HYDRALAZINE [Concomitant]
  3. SILDENAFIL [Concomitant]
     Indication: PULMONARY ARTERIAL HYPERTENSION
  4. FUROSEMIDE [Concomitant]
  5. DIGOXIN [Concomitant]
  6. SPIRONOLACTONE [Concomitant]
     Dosage: 2.5 UNK, UNK

REACTIONS (2)
  - Acute pulmonary oedema [Recovering/Resolving]
  - Dyspnoea [Recovering/Resolving]
